FAERS Safety Report 9736261 (Version 1)
Quarter: 2013Q4

REPORT INFORMATION
  Report Type: Report from Study
  Country: IT (occurrence: IT)
  Receive Date: 20131206
  Receipt Date: 20131206
  Transmission Date: 20140711
  Serious: Yes (Hospitalization)
  Sender: FDA-Public Use
  Company Number: IT-PFIZER INC-2013344351

PATIENT
  Sex: 0

DRUGS (2)
  1. SIMVASTATIN [Suspect]
     Dosage: 40 MG, DAILY
  2. AMLODIPINE BESILATE [Interacting]
     Dosage: UNK

REACTIONS (2)
  - Drug interaction [Unknown]
  - Myopathy [Unknown]
